FAERS Safety Report 4702305-3 (Version None)
Quarter: 2005Q2

REPORT INFORMATION
  Report Type: 
  Country: None (occurrence: None)
  Receive Date: 20050624
  Receipt Date: 20050228
  Transmission Date: 20051028
  Serious: No
  Sender: FDA-Public Use
  Company Number: 2005BI004461

PATIENT
  Age: 54 Year
  Sex: Female
  Weight: 68.0396 kg

DRUGS (1)
  1. NATALIZUMAB [Suspect]
     Indication: MULTIPLE SCLEROSIS
     Dosage: 300 MG; QM; IV
     Route: 042
     Dates: start: 20050103, end: 20050222

REACTIONS (11)
  - CHEST DISCOMFORT [None]
  - CONTUSION [None]
  - CYSTITIS [None]
  - DYSPEPSIA [None]
  - DYSPHONIA [None]
  - FATIGUE [None]
  - FEELING OF DESPAIR [None]
  - FUNGAL INFECTION [None]
  - MASS [None]
  - POLLAKIURIA [None]
  - STRESS [None]
